FAERS Safety Report 24307620 (Version 1)
Quarter: 2024Q3

REPORT INFORMATION
  Report Type: Spontaneous
  Country: DE (occurrence: DE)
  Receive Date: 20240911
  Receipt Date: 20240911
  Transmission Date: 20241016
  Serious: Yes (Other)
  Sender: TEVA
  Company Number: None

PATIENT
  Sex: Female

DRUGS (2)
  1. RAMIPRIL [Suspect]
     Active Substance: RAMIPRIL
     Indication: Coronary artery disease
     Dosage: 2X5MG DAILY INITIALLY
     Route: 065
     Dates: start: 2017
  2. RAMIPRIL [Suspect]
     Active Substance: RAMIPRIL
     Indication: Coronary artery disease
     Dosage: 2X2.5MG DAILY FOR A LONG TIME
     Route: 065

REACTIONS (4)
  - Polyneuropathy [Unknown]
  - Hypoaesthesia [Unknown]
  - Limb discomfort [Unknown]
  - Anxiety [Unknown]
